FAERS Safety Report 9110987 (Version 1)
Quarter: 2013Q1

REPORT INFORMATION
  Report Type: Spontaneous
  Country: US (occurrence: US)
  Receive Date: 20130219
  Receipt Date: 20130219
  Transmission Date: 20140127
  Serious: No
  Sender: FDA-Public Use
  Company Number: US-BRISTOL-MYERS SQUIBB COMPANY-17209289

PATIENT
  Age: 84 Year
  Sex: Female
  Weight: 77.1 kg

DRUGS (3)
  1. ORENCIA [Suspect]
     Dosage: RECENT DOSE 11DEC2012
  2. VALIUM [Concomitant]
  3. SULFA [Concomitant]

REACTIONS (1)
  - Tooth fracture [Unknown]
